FAERS Safety Report 4983651-5 (Version None)
Quarter: 2006Q2

REPORT INFORMATION
  Report Type: 
  Country: None (occurrence: None)
  Receive Date: 20060425
  Receipt Date: 20060425
  Transmission Date: 20061013
  Serious: Yes (Other)
  Sender: FDA-Public Use
  Company Number: None

PATIENT
  Age: 85 Year
  Sex: Male
  Weight: 81.6 kg

DRUGS (15)
  1. SEPTRA DS [Suspect]
  2. AMLODIPINE BESYLATE [Concomitant]
  3. PAROXETINE HCL [Concomitant]
  4. LORAZEPAM [Concomitant]
  5. DONEPEZIL HCL [Concomitant]
  6. GLYBURIDE [Concomitant]
  7. NITROGLYCERIN [Concomitant]
  8. SULFAMETHOXAZOLE + TRIMETHOPRIM [Concomitant]
  9. CYANOCOBALAMIN [Concomitant]
  10. OMEPRAZOLE [Concomitant]
  11. METFORMIN HYDROCHLORIDE [Concomitant]
  12. COUMADIN [Concomitant]
  13. CARBIDOPA AND LEVODOPA [Concomitant]
  14. SYNTHROID [Concomitant]
  15. POTASSIUM CHLORIDE [Concomitant]

REACTIONS (1)
  - RASH [None]
